FAERS Safety Report 8880751 (Version 4)
Quarter: 2013Q2

REPORT INFORMATION
  Report Type: Report from Study
  Country: FR (occurrence: FR)
  Receive Date: 20121101
  Receipt Date: 20130514
  Transmission Date: 20140414
  Serious: Yes (Hospitalization)
  Sender: FDA-Public Use
  Company Number: FR-BAYER-2012-022165

PATIENT
  Age: 65 Year
  Sex: Female
  Weight: 49 kg

DRUGS (8)
  1. SORAFENIB (RAF KINASE INHIBITOR) [Suspect]
     Indication: BREAST CANCER METASTATIC
     Dosage: DAILY DOSE: 600 MG DAILY
     Route: 048
     Dates: start: 20120215, end: 20120303
  2. ADDITIONAL STUDY MEDICATION [Suspect]
     Indication: BREAST CANCER METASTATIC
     Dosage: DAILY DOSE: 2900 MG
     Route: 048
     Dates: start: 20120215, end: 20120303
  3. PARACETAMOL [Concomitant]
     Indication: PAIN
     Dosage: PRN
     Route: 048
  4. SEROPLEX [Concomitant]
     Indication: DEPRESSION
     Dosage: 1/ DAY
     Route: 048
     Dates: start: 201107
  5. ALPRAZOLAM [Concomitant]
     Indication: DEPRESSION
     Dosage: 1.5/DAY
     Route: 048
     Dates: start: 201107
  6. IMOVANE [Concomitant]
     Indication: INSOMNIA
     Dosage: 1/2 IN THE EVENING
     Route: 048
     Dates: start: 201107
  7. ULTRAVIST 370 [Concomitant]
     Indication: COMPUTERISED TOMOGRAM
     Dosage: 80 CC
     Dates: start: 20120113, end: 20120113
  8. ULTRAVIST 370 [Concomitant]
     Indication: COMPUTERISED TOMOGRAM
     Dosage: 75 CC
     Dates: start: 20120327, end: 20120327

REACTIONS (3)
  - Headache [Recovered/Resolved]
  - Disturbance in attention [Recovered/Resolved]
  - Confusional state [Recovered/Resolved]
